FAERS Safety Report 18264667 (Version 2)
Quarter: 2020Q3

REPORT INFORMATION
  Report Type: Spontaneous
  Country: US (occurrence: US)
  Receive Date: 20200914
  Receipt Date: 20200921
  Transmission Date: 20201103
  Serious: No
  Sender: FDA-Public Use
  Company Number: US-PFIZER INC-2020352482

PATIENT
  Age: 55 Year
  Sex: Female
  Weight: 81.65 kg

DRUGS (1)
  1. IBRANCE [Suspect]
     Active Substance: PALBOCICLIB
     Indication: HORMONE RECEPTOR POSITIVE BREAST CANCER
     Dosage: 125 MG, CYCLIC (125MG DAILY FOR 21 DAYS AND AND OFF FOR 7 DAYS AT SUPPER TIME)
     Route: 048
     Dates: start: 202009

REACTIONS (3)
  - Nausea [Unknown]
  - Headache [Unknown]
  - Anxiety [Unknown]

NARRATIVE: CASE EVENT DATE: 202009
